FAERS Safety Report 14822384 (Version 1)
Quarter: 2018Q2

REPORT INFORMATION
  Report Type: Spontaneous
  Country: US (occurrence: US)
  Receive Date: 20180427
  Receipt Date: 20180427
  Transmission Date: 20180711
  Serious: Yes (Hospitalization, Other)
  Sender: FDA-Public Use
  Company Number: US-PFIZER INC-2018170250

PATIENT
  Age: 61 Year
  Sex: Male

DRUGS (2)
  1. CHANTIX [Suspect]
     Active Substance: VARENICLINE TARTRATE
     Indication: SMOKING CESSATION THERAPY
     Dosage: UNK
     Dates: start: 2011, end: 2011
  2. ATENOLOL. [Concomitant]
     Active Substance: ATENOLOL
     Indication: BLOOD PRESSURE ABNORMAL
     Dosage: 25 MG OR 50 MG TABLET A DAY BY MOUTH TO THE TIME OF THE EVENT
     Route: 048

REACTIONS (13)
  - Loss of consciousness [Unknown]
  - Depression [Recovering/Resolving]
  - Postoperative wound complication [Unknown]
  - Myocardial infarction [Recovered/Resolved with Sequelae]
  - Staphylococcal infection [Unknown]
  - Weight increased [Unknown]
  - Cough [Unknown]
  - Mobility decreased [Unknown]
  - Dysgeusia [Unknown]
  - Gait disturbance [Unknown]
  - Tremor [Unknown]
  - Vascular occlusion [Unknown]
  - Back disorder [Unknown]

NARRATIVE: CASE EVENT DATE: 2011
